FAERS Safety Report 19505381 (Version 1)
Quarter: 2021Q3

REPORT INFORMATION
  Report Type: Spontaneous
  Country: US (occurrence: US)
  Receive Date: 20210707
  Receipt Date: 20210707
  Transmission Date: 20211014
  Serious: No
  Sender: FDA-Public Use
  Company Number: None

PATIENT
  Sex: Female

DRUGS (1)
  1. OTEZLA [Suspect]
     Active Substance: APREMILAST
     Indication: POLYARTHRITIS
     Route: 048
     Dates: start: 20210611

REACTIONS (4)
  - Arthralgia [None]
  - Therapy non-responder [None]
  - Condition aggravated [None]
  - Joint swelling [None]
